FAERS Safety Report 11897712 (Version 1)
Quarter: 2016Q1

REPORT INFORMATION
  Report Type: Spontaneous
  Country: US (occurrence: None)
  Receive Date: 20160106
  Receipt Date: 20160106
  Transmission Date: 20160526
  Serious: Yes (Other)
  Sender: FDA-Public Use
  Company Number: None

PATIENT
  Age: 41 Year
  Sex: Male
  Weight: 82.7 kg

DRUGS (1)
  1. CERTOLIZUMAB [Suspect]
     Active Substance: CERTOLIZUMAB
     Indication: SPONDYLOARTHROPATHY
     Dosage: 400 MG ML OTHER SQ
     Route: 058
     Dates: start: 20151026, end: 20151104

REACTIONS (8)
  - Somnolence [None]
  - Idiosyncratic drug reaction [None]
  - Hyperhidrosis [None]
  - Paraesthesia [None]
  - Pollakiuria [None]
  - Cough [None]
  - Abdominal pain upper [None]
  - Diarrhoea [None]

NARRATIVE: CASE EVENT DATE: 20151103
